FAERS Safety Report 6551411-X (Version None)
Quarter: 2010Q1

REPORT INFORMATION
  Report Type: 
  Country: None (occurrence: None)
  Receive Date: 20100120
  Receipt Date: 20100106
  Transmission Date: 20100710
  Serious: Yes (Death, Hospitalization)
  Sender: FDA-Public Use
  Company Number: A-NJ2008-23240

PATIENT
  Age: 79 Year
  Sex: Female

DRUGS (8)
  1. TRACLEER [Suspect]
     Indication: PULMONARY ARTERIAL HYPERTENSION
     Dosage: ORAL; 62.5 MG, BID, ORAL; 125 MG, BID, ORAL
     Route: 048
     Dates: start: 20070317, end: 20070416
  2. TRACLEER [Suspect]
     Indication: PULMONARY ARTERIAL HYPERTENSION
     Dosage: ORAL; 62.5 MG, BID, ORAL; 125 MG, BID, ORAL
     Route: 048
     Dates: start: 20070417, end: 20081230
  3. TRACLEER [Suspect]
     Indication: PULMONARY ARTERIAL HYPERTENSION
     Dosage: ORAL; 62.5 MG, BID, ORAL; 125 MG, BID, ORAL
     Route: 048
     Dates: start: 20090101, end: 20090901
  4. TRACLEER [Suspect]
     Indication: PULMONARY ARTERIAL HYPERTENSION
     Dosage: ORAL; 62.5 MG, BID, ORAL; 125 MG, BID, ORAL
     Route: 048
     Dates: start: 20091001, end: 20091101
  5. Z-PAK(AZITHROMYCIN) [Suspect]
  6. ROBITUSSIN (GUAIFENESIN) [Concomitant]
  7. LASIX [Concomitant]
  8. REVATIO [Concomitant]

REACTIONS (20)
  - ABDOMINAL PAIN [None]
  - ALANINE AMINOTRANSFERASE INCREASED [None]
  - ANAEMIA [None]
  - ASPARTATE AMINOTRANSFERASE INCREASED [None]
  - BLOOD ALKALINE PHOSPHATASE INCREASED [None]
  - BLOOD BILIRUBIN INCREASED [None]
  - BLOOD LACTIC ACID INCREASED [None]
  - CONFUSIONAL STATE [None]
  - DIALYSIS [None]
  - FLUID INTAKE REDUCED [None]
  - HYPOPHAGIA [None]
  - JAUNDICE [None]
  - LIVER FUNCTION TEST ABNORMAL [None]
  - LIVER INJURY [None]
  - MEMORY IMPAIRMENT [None]
  - MENTAL STATUS CHANGES [None]
  - MYOCARDIAL INFARCTION [None]
  - NASOPHARYNGITIS [None]
  - RENAL FAILURE [None]
  - SEPTIC SHOCK [None]
